FAERS Safety Report 9244645 (Version 1)
Quarter: 2013Q1

REPORT INFORMATION
  Report Type: Spontaneous
  Country: US (occurrence: None)
  Receive Date: 20121130
  Receipt Date: 20121130
  Transmission Date: 20140127
  Serious: Yes (Disabling)
  Sender: FDA-Public Use
  Company Number: PHEH2012US003191

PATIENT
  Age: 63 Year
  Sex: Male

DRUGS (3)
  1. LAMISIL [Suspect]
  2. LIPITROL (BEZAFIBRATE) [Concomitant]
  3. INSULIN (INSULIN) [Concomitant]

REACTIONS (3)
  - Rash papular [None]
  - Rash pruritic [None]
  - Ageusia [None]
